FAERS Safety Report 7720319-6 (Version None)
Quarter: 2011Q3

REPORT INFORMATION
  Report Type: 
  Country: None (occurrence: None)
  Receive Date: 20110831
  Receipt Date: 20110830
  Transmission Date: 20111222
  Serious: No
  Sender: FDA-Public Use
  Company Number: US-PFIZER INC-2011196040

PATIENT
  Sex: Female
  Weight: 135 kg

DRUGS (4)
  1. CELEBREX [Suspect]
     Indication: OSTEOARTHRITIS
     Dosage: UNK
     Route: 048
  2. NAPROXEN (ALEVE) [Suspect]
     Dosage: 75 MG, 2X/DAY
  3. VIOXX [Suspect]
     Dosage: UNK
  4. MOTRIN [Suspect]
     Dosage: UNK
     Route: 048

REACTIONS (1)
  - DRUG INEFFECTIVE [None]
